FAERS Safety Report 9147153 (Version 2)
Quarter: 2013Q4

REPORT INFORMATION
  Report Type: Report from Study
  Country: RS (occurrence: RS)
  Receive Date: 20130307
  Receipt Date: 20131030
  Transmission Date: 20140711
  Serious: Yes (Hospitalization)
  Sender: FDA-Public Use
  Company Number: 2012SP003564

PATIENT
  Age: 61 Year
  Sex: Male
  Weight: 83 kg

DRUGS (4)
  1. SM-13496 [Suspect]
     Indication: BIPOLAR DISORDER
     Route: 048
     Dates: start: 20121113, end: 20121228
  2. VALPROIC ACID [Suspect]
     Indication: BIPOLAR DISORDER
     Route: 048
  3. DUROFILIN [Concomitant]
     Indication: ASTHMA
     Route: 048
     Dates: start: 2000, end: 20130104
  4. VERAPAMIL [Concomitant]
     Indication: ASTHMA
     Route: 048
     Dates: start: 2005, end: 20130104

REACTIONS (1)
  - Asthma [Recovered/Resolved]
